FAERS Safety Report 15758259 (Version 1)
Quarter: 2018Q4

REPORT INFORMATION
  Report Type: Spontaneous
  Country: IT (occurrence: IT)
  Receive Date: 20181225
  Receipt Date: 20181225
  Transmission Date: 20190205
  Serious: Yes (Other)
  Sender: FDA-Public Use
  Company Number: IT-AUROBINDO-AUR-APL-2018-061416

PATIENT
  Age: 17 Year
  Sex: Female
  Weight: 58 kg

DRUGS (2)
  1. PARACETAMOL TABLET [Suspect]
     Active Substance: ACETAMINOPHEN
     Indication: HYPERPYREXIA
     Dosage: 2 GRAM, ONCE A DAY
     Route: 048
     Dates: start: 20181125, end: 20181129
  2. AMOXICILLIN+CLAVULANIC ACID FILM-COATED TABLETS [Suspect]
     Active Substance: AMOXICILLIN\CLAVULANIC ACID
     Indication: HYPERPYREXIA
     Dosage: 2 GRAM, ONCE A DAY
     Route: 065
     Dates: start: 20181126, end: 20181128

REACTIONS (4)
  - Jaundice [Recovering/Resolving]
  - Hyperpyrexia [Recovering/Resolving]
  - Aspartate aminotransferase [Recovering/Resolving]
  - Chromaturia [Recovering/Resolving]

NARRATIVE: CASE EVENT DATE: 20181129
